FAERS Safety Report 24903040 (Version 1)
Quarter: 2025Q1

REPORT INFORMATION
  Report Type: Spontaneous
  Country: BY (occurrence: BY)
  Receive Date: 20250130
  Receipt Date: 20250130
  Transmission Date: 20250409
  Serious: Yes (Death, Other)
  Sender: JOHNSON AND JOHNSON
  Company Number: BY-JNJFOC-20250163761

PATIENT
  Age: 52 Year
  Sex: Male
  Weight: 63 kg

DRUGS (11)
  1. SIRTURO [Suspect]
     Active Substance: BEDAQUILINE FUMARATE
     Indication: Tuberculosis
     Dosage: FOR 2 WEEKS
     Route: 048
     Dates: start: 20231221
  2. SIRTURO [Suspect]
     Active Substance: BEDAQUILINE FUMARATE
     Dosage: TIW
     Route: 048
     Dates: end: 20240707
  3. PYRAZINAMIDE [Suspect]
     Active Substance: PYRAZINAMIDE
     Indication: Tuberculosis
     Route: 048
     Dates: start: 20231221, end: 20240707
  4. LINEZOLID [Suspect]
     Active Substance: LINEZOLID
     Indication: Tuberculosis
     Route: 048
     Dates: end: 20240707
  5. LINEZOLID [Suspect]
     Active Substance: LINEZOLID
     Route: 048
     Dates: start: 20231221
  6. CLOFAZIMINE [Suspect]
     Active Substance: CLOFAZIMINE
     Indication: Tuberculosis
     Route: 048
     Dates: start: 20231221, end: 20240707
  7. FERROUS SULFATE [Concomitant]
     Active Substance: FERROUS SULFATE
     Indication: Anaemia
     Dates: start: 20240216, end: 20240604
  8. FOLIC ACID [Concomitant]
     Active Substance: FOLIC ACID
     Indication: Anaemia
     Dates: start: 20240216, end: 20240604
  9. FOLIC ACID [Concomitant]
     Active Substance: FOLIC ACID
     Indication: Neoplasm malignant
     Dates: start: 20240425, end: 20240506
  10. TRAMADOL [Concomitant]
     Active Substance: TRAMADOL
     Indication: Neoplasm malignant
     Dates: start: 20240422, end: 20240604
  11. ASPICARD [Concomitant]
     Indication: Myocardial ischaemia
     Dates: start: 20231221

REACTIONS (1)
  - Oral cavity cancer metastatic [Fatal]

NARRATIVE: CASE EVENT DATE: 20240929
